FAERS Safety Report 19785390 (Version 1)
Quarter: 2021Q3

REPORT INFORMATION
  Report Type: Spontaneous
  Country: CN (occurrence: CN)
  Receive Date: 20210903
  Receipt Date: 20210903
  Transmission Date: 20211014
  Serious: Yes (Other)
  Sender: FDA-Public Use
  Company Number: CN-PFIZER INC-202101111106

PATIENT
  Age: 33 Year
  Sex: Female

DRUGS (1)
  1. CARDURA XL [Suspect]
     Active Substance: DOXAZOSIN MESYLATE
     Indication: BLOOD PRESSURE INCREASED
     Dosage: 4 MG, 1X/DAY
     Route: 048
     Dates: start: 20210813, end: 20210813

REACTIONS (3)
  - Pruritus [Recovering/Resolving]
  - Rash [Recovered/Resolved]
  - Papule [Recovering/Resolving]

NARRATIVE: CASE EVENT DATE: 20210813
